FAERS Safety Report 4859911-5 (Version None)
Quarter: 2005Q4

REPORT INFORMATION
  Report Type: 
  Country: None (occurrence: None)
  Receive Date: 20051215
  Receipt Date: 20051202
  Transmission Date: 20060501
  Serious: Yes (Death)
  Sender: FDA-Public Use
  Company Number: 2005S1010113

PATIENT
  Age: 55 Year
  Sex: Female

DRUGS (13)
  1. CLOZAPINE [Suspect]
     Dosage: SEE IMAGE
     Route: 048
     Dates: start: 20050505, end: 20050808
  2. CLOZAPINE [Suspect]
     Dosage: SEE IMAGE
     Route: 048
     Dates: start: 20050505, end: 20051010
  3. CLOZAPINE [Suspect]
     Dosage: SEE IMAGE
     Route: 048
     Dates: start: 20050505, end: 20051010
  4. CLOZAPINE [Suspect]
     Dosage: SEE IMAGE
     Route: 048
     Dates: start: 20050809, end: 20051010
  5. MORPHINE SULFATE [Concomitant]
  6. VALPROATE SODIUM [Concomitant]
  7. BENZTROPINE MESYLATE [Concomitant]
  8. PARACETAMOL/DEXTROPROPOXYPHENE NAPSILATE [Concomitant]
  9. CYCLOBENZAPRINE HCL [Concomitant]
  10. ATENOLOL [Concomitant]
  11. LORAZEPAM [Concomitant]
  12. LIDOCAINE [Concomitant]
  13. CITALOPRAM HYDROBROMIDE [Concomitant]

REACTIONS (1)
  - DEATH [None]
